FAERS Safety Report 7869128-8 (Version None)
Quarter: 2011Q4

REPORT INFORMATION
  Report Type: 
  Country: None (occurrence: None)
  Receive Date: 20111021
  Receipt Date: 20110921
  Transmission Date: 20120403
  Serious: Yes (Other)
  Sender: FDA-Public Use
  Company Number: 2011SP037766

PATIENT
  Age: 37 Year
  Sex: Female

DRUGS (2)
  1. SAPHRIS [Suspect]
     Indication: SCHIZOPHRENIA
     Dosage: 5 MG;QD;SL
     Route: 060
     Dates: start: 20110809
  2. TRAZODONE HYDROCHLORIDE [Concomitant]

REACTIONS (10)
  - ANGER [None]
  - DEPRESSION [None]
  - PRODUCT FORMULATION ISSUE [None]
  - PALLOR [None]
  - LOSS OF LIBIDO [None]
  - AGGRESSION [None]
  - DRUG DOSE OMISSION [None]
  - ASTHENIA [None]
  - WEIGHT INCREASED [None]
  - EMOTIONAL DISORDER [None]
